FAERS Safety Report 6678920-7 (Version None)
Quarter: 2010Q2

REPORT INFORMATION
  Report Type: 
  Country: None (occurrence: None)
  Receive Date: 20100402
  Receipt Date: 20090305
  Transmission Date: 20101027
  Serious: Yes (Other)
  Sender: FDA-Public Use
  Company Number: 2009170779

PATIENT
  Sex: Male

DRUGS (2)
  1. ARGATROBAN [Suspect]
     Indication: HEPARIN-INDUCED THROMBOCYTOPENIA
     Dosage: 150 UG/KG, IV BOLUS, 5 UG/KG/MIN, INTRAVENOUS
     Dates: start: 20090213, end: 20090213
  2. ARGATROBAN [Suspect]
     Indication: HEPARIN-INDUCED THROMBOCYTOPENIA
     Dosage: 150 UG/KG, IV BOLUS, 5 UG/KG/MIN, INTRAVENOUS
     Dates: start: 20090213, end: 20090213

REACTIONS (1)
  - COAGULATION TIME PROLONGED [None]
